FAERS Safety Report 24076601 (Version 1)
Quarter: 2024Q3

REPORT INFORMATION
  Report Type: Spontaneous
  Country: CA (occurrence: CA)
  Receive Date: 20240711
  Receipt Date: 20240711
  Transmission Date: 20241017
  Serious: Yes (Other)
  Sender: NOVITIUM PHARMA
  Company Number: CA-NOVITIUMPHARMA-2024CANVP01215

PATIENT
  Age: 44 Year
  Sex: Female

DRUGS (5)
  1. PREDNISONE [Suspect]
     Active Substance: PREDNISONE
     Indication: Occupational asthma
  2. PREDNISONE [Suspect]
     Active Substance: PREDNISONE
  3. FENOTEROL [Concomitant]
     Active Substance: FENOTEROL
     Indication: Occupational asthma
  4. BECLOMETHASONE DIPROPIONATE [Concomitant]
     Active Substance: BECLOMETHASONE DIPROPIONATE
     Indication: Occupational asthma
  5. BUDESONIDE\FORMOTEROL [Concomitant]
     Active Substance: BUDESONIDE\FORMOTEROL
     Indication: Occupational asthma

REACTIONS (2)
  - Steroid withdrawal syndrome [Unknown]
  - Polymyalgia rheumatica [Unknown]
